FAERS Safety Report 5766738-9 (Version None)
Quarter: 2008Q2

REPORT INFORMATION
  Report Type: 
  Country: None (occurrence: None)
  Receive Date: 20080612
  Receipt Date: 20080603
  Transmission Date: 20081010
  Serious: Yes (Disabling, Other)
  Sender: FDA-Public Use
  Company Number: US-ALLERGAN-0805373US

PATIENT
  Sex: Male
  Weight: 90.703 kg

DRUGS (3)
  1. BOTOX [Suspect]
     Indication: MUSCLE SPASTICITY
     Dosage: 900 UNITS, SINGLE
     Route: 030
     Dates: start: 20060721, end: 20060721
  2. BOTOX [Suspect]
     Dosage: 900 UNITS, SINGLE
     Route: 030
     Dates: start: 20080214, end: 20080214
  3. BACLOFEN [Concomitant]
     Indication: MUSCLE SPASTICITY
     Dates: start: 20060801

REACTIONS (7)
  - APHASIA [None]
  - COUGH [None]
  - DRY MOUTH [None]
  - DYSPHAGIA [None]
  - MUSCULAR WEAKNESS [None]
  - OVERDOSE [None]
  - PNEUMONIA ASPIRATION [None]
